FAERS Safety Report 7930313-8 (Version None)
Quarter: 2011Q4

REPORT INFORMATION
  Report Type: 
  Country: None (occurrence: None)
  Receive Date: 20111121
  Receipt Date: 20111117
  Transmission Date: 20120403
  Serious: Yes (Hospitalization)
  Sender: FDA-Public Use
  Company Number: IL-ABBOTT-11P-082-0874743-00

PATIENT
  Sex: Male
  Weight: 54 kg

DRUGS (2)
  1. KALETRA [Suspect]
     Indication: HIV INFECTION
     Dates: start: 20110124
  2. THEOTRIM SR [Concomitant]
     Indication: DYSPNOEA
     Dates: start: 20100201

REACTIONS (4)
  - PNEUMONIA [None]
  - LUNG DISORDER [None]
  - DYSPNOEA [None]
  - TACHYPNOEA [None]
